FAERS Safety Report 5027199-0 (Version None)
Quarter: 2006Q2

REPORT INFORMATION
  Report Type: 
  Country: None (occurrence: None)
  Receive Date: 20060501
  Receipt Date: 20051222
  Transmission Date: 20061013
  Serious: No
  Sender: FDA-Public Use
  Company Number: 2005PV006188

PATIENT
  Age: 61 Year
  Sex: Female
  Weight: 68.9467 kg

DRUGS (5)
  1. SYMLIN [Suspect]
     Indication: DIABETES MELLITUS INSULIN-DEPENDENT
     Dosage: 30 MCG; QAM; SC; SEE IMAGE
     Route: 058
     Dates: start: 20051001
  2. SYMLIN [Suspect]
     Indication: DIABETES MELLITUS INSULIN-DEPENDENT
     Dosage: 30 MCG; QAM; SC; SEE IMAGE
     Route: 058
     Dates: start: 20051001
  3. HUMALOG [Concomitant]
  4. LENTE [Concomitant]
  5. LANTUS [Concomitant]

REACTIONS (2)
  - DECREASED APPETITE [None]
  - WEIGHT DECREASED [None]
